FAERS Safety Report 4299594-9 (Version None)
Quarter: 2004Q1

REPORT INFORMATION
  Report Type: 
  Country: None (occurrence: None)
  Receive Date: 20040217
  Receipt Date: 20040202
  Transmission Date: 20041129
  Serious: Yes (Death, Life-Threatening, Hospitalization)
  Sender: FDA-Public Use
  Company Number: 2004004053

PATIENT
  Age: 70 Year
  Sex: Female
  Weight: 113 kg

DRUGS (10)
  1. PRAZOSIN HCL [Suspect]
     Indication: ILL-DEFINED DISORDER
     Dosage: 5 MG, ORAL
     Route: 048
  2. MITOTANE (MITOTANE) [Suspect]
     Indication: ILL-DEFINED DISORDER
     Dosage: 1500 MG (TID), ORAL
     Route: 048
     Dates: start: 20031121, end: 20031123
  3. ENALAPRIL MALEATE [Suspect]
     Indication: ILL-DEFINED DISORDER
     Dosage: 20 MG, ORAL
     Route: 048
  4. NICARDIPINE HCL [Suspect]
     Indication: ILL-DEFINED DISORDER
     Dosage: 50 MG, ORAL
     Route: 048
  5. SOTALOL HCL [Suspect]
     Indication: ILL-DEFINED DISORDER
     Dosage: 80 MG, ORAL
     Route: 048
  6. SPIRONOLACTONE [Suspect]
     Indication: ILL-DEFINED DISORDER
     Dosage: 75 MG, ORAL
     Route: 048
  7. POTASSIUM CHLORIDE [Concomitant]
  8. OMEPRAZOLE [Concomitant]
  9. ACETYLCYSTEINE [Concomitant]
  10. ZOLPIDEM TARTRATE [Concomitant]

REACTIONS (8)
  - ADRENAL INSUFFICIENCY [None]
  - ANAEMIA [None]
  - CONDITION AGGRAVATED [None]
  - HYPERKALAEMIA [None]
  - HYPOVOLAEMIC SHOCK [None]
  - RENAL FAILURE [None]
  - SHOCK HAEMORRHAGIC [None]
  - TUMOUR NECROSIS [None]
